FAERS Safety Report 7359771-7 (Version None)
Quarter: 2011Q1

REPORT INFORMATION
  Report Type: 
  Country: None (occurrence: None)
  Receive Date: 20110307
  Receipt Date: 20090407
  Transmission Date: 20110831
  Serious: Yes (Life-Threatening, Hospitalization, Disabling, Other)
  Sender: FDA-Public Use
  Company Number: UK-2009-00111

PATIENT
  Age: 58 Year
  Sex: Male

DRUGS (9)
  1. CLARITHROMYCIN [Suspect]
     Indication: RESPIRATORY TRACT INFECTION
     Dosage: 1000 MG (500 MG, 2 IN 1 D), ORAL
     Route: 048
     Dates: start: 20081201, end: 20081201
  2. VITAMIN D/ VITAMIN D SUBSTANCES (ALFACALCIDOL) [Concomitant]
  3. ASPIRIN [Concomitant]
  4. INSULIN SOURCE UNSPECIFIED (INSULIN) [Concomitant]
  5. IRBESARTAN [Concomitant]
  6. CYCLOSPORINE [Concomitant]
  7. ALLOPURINOL [Concomitant]
  8. SILDENAFIL [Concomitant]
  9. SIMVASTATIN [Suspect]
     Indication: BLOOD CHOLESTEROL INCREASED
     Dosage: 40 MG (40 MG, 1 IN 1 D), ORAL
     Route: 048
     Dates: end: 20090101

REACTIONS (5)
  - MYOPATHY [None]
  - METABOLIC ACIDOSIS [None]
  - PARALYSIS [None]
  - BLOOD POTASSIUM INCREASED [None]
  - BLOOD CREATINE PHOSPHOKINASE INCREASED [None]
